FAERS Safety Report 7035480-9 (Version None)
Quarter: 2010Q4

REPORT INFORMATION
  Report Type: 
  Country: None (occurrence: None)
  Receive Date: 20101008
  Receipt Date: 20101005
  Transmission Date: 20110411
  Serious: Yes (Death, Hospitalization, Other)
  Sender: FDA-Public Use
  Company Number: TR-CELGENEUS-161-21880-10100574

PATIENT
  Age: 48 Year
  Sex: Male

DRUGS (3)
  1. REVLIMID [Suspect]
     Indication: MULTIPLE MYELOMA
     Route: 048
     Dates: start: 20100201
  2. REVLIMID [Suspect]
     Route: 048
     Dates: start: 20100301, end: 20100401
  3. DEXAMETHASONE [Concomitant]
     Indication: MULTIPLE MYELOMA
     Route: 065
     Dates: start: 20100301

REACTIONS (5)
  - ANAEMIA [None]
  - COUGH [None]
  - DYSPNOEA [None]
  - LUNG INFECTION [None]
  - SEPTIC SHOCK [None]
